FAERS Safety Report 7416093-3 (Version None)
Quarter: 2011Q2

REPORT INFORMATION
  Report Type: 
  Country: None (occurrence: None)
  Receive Date: 20110414
  Receipt Date: 20110401
  Transmission Date: 20111010
  Serious: Yes (Hospitalization, Other)
  Sender: FDA-Public Use
  Company Number: US-ELI_LILLY_AND_COMPANY-US201104001153

PATIENT
  Sex: Male

DRUGS (1)
  1. ZYPREXA ZYDIS [Suspect]
     Indication: BIPOLAR II DISORDER
     Dosage: 10 MG, BID
     Dates: start: 20020101

REACTIONS (5)
  - WEIGHT LOSS POOR [None]
  - MENTAL DISORDER [None]
  - HUNGER [None]
  - WEIGHT INCREASED [None]
  - BLOOD CHOLESTEROL INCREASED [None]
